FAERS Safety Report 6372786-0 (Version None)
Quarter: 2009Q3

REPORT INFORMATION
  Report Type: 
  Country: None (occurrence: None)
  Receive Date: 20090924
  Receipt Date: 20090602
  Transmission Date: 20100115
  Serious: Yes (Other)
  Sender: FDA-Public Use
  Company Number: US-ASTRAZENECA-2008UW25652

PATIENT
  Age: 59 Year
  Sex: Male
  Weight: 72.6 kg

DRUGS (9)
  1. SEROQUEL [Suspect]
     Indication: BIPOLAR DISORDER
     Route: 048
     Dates: start: 19950101, end: 20080101
  2. SEROQUEL [Suspect]
     Indication: DEPRESSION
     Route: 048
     Dates: start: 19950101, end: 20080101
  3. SEROQUEL [Suspect]
     Indication: SCHIZOPHRENIA
     Route: 048
     Dates: start: 19950101, end: 20080101
  4. SEROQUEL [Suspect]
     Indication: ANXIETY
     Route: 048
     Dates: start: 19950101, end: 20080101
  5. CLOZARIL [Concomitant]
     Dates: start: 19700601
  6. GEODON [Concomitant]
     Dates: start: 19700601
  7. THORAZINE [Concomitant]
  8. LITHIUM [Concomitant]
     Dates: start: 20040701
  9. DEPAKOTE [Concomitant]
     Dates: start: 20040701

REACTIONS (3)
  - DIABETES MELLITUS [None]
  - KETOACIDOSIS [None]
  - TARDIVE DYSKINESIA [None]
